FAERS Safety Report 7237131-7 (Version None)
Quarter: 2010Q4

REPORT INFORMATION
  Report Type: 
  Country: None (occurrence: None)
  Receive Date: 20101130
  Receipt Date: 20100429
  Transmission Date: 20110411
  Serious: Yes (Hospitalization)
  Sender: FDA-Public Use
  Company Number: 2010SP025056

PATIENT
  Age: 31 Year
  Sex: Female
  Weight: 63.5036 kg

DRUGS (1)
  1. NUVARING [Suspect]
     Indication: CONTRACEPTION
     Dates: start: 20050630, end: 20071109

REACTIONS (5)
  - CONSTIPATION [None]
  - DEEP VEIN THROMBOSIS [None]
  - LIPODYSTROPHY ACQUIRED [None]
  - PULMONARY EMBOLISM [None]
  - SKIN STRIAE [None]
